FAERS Safety Report 6873450-1 (Version None)
Quarter: 2010Q3

REPORT INFORMATION
  Report Type: 
  Country: None (occurrence: None)
  Receive Date: 20100723
  Receipt Date: 20090123
  Transmission Date: 20110219
  Serious: No
  Sender: FDA-Public Use
  Company Number: US-PFIZER INC-2009160812

PATIENT
  Sex: Female
  Weight: 59 kg

DRUGS (11)
  1. CHANTIX [Suspect]
     Indication: SMOKING CESSATION THERAPY
     Dosage: 1 MG, 2X/DAY
     Dates: start: 20090101
  2. ACETYLSALICYLIC ACID [Concomitant]
     Dosage: UNK
  3. CALCIUM [Concomitant]
     Dosage: UNK
  4. PRILOSEC [Concomitant]
     Dosage: UNK
  5. VERAPAMIL [Concomitant]
     Dosage: UNK
  6. CITALOPRAM [Concomitant]
     Dosage: UNK
  7. BUSPAR [Concomitant]
     Dosage: UNK
  8. IMDUR [Concomitant]
     Dosage: UNK
  9. ARICEPT [Concomitant]
     Indication: MEMORY IMPAIRMENT
     Dosage: UNK
  10. CRESTOR [Concomitant]
     Dosage: UNK
  11. LORAZEPAM [Concomitant]
     Dosage: UNK

REACTIONS (1)
  - NAUSEA [None]
